FAERS Safety Report 6384442-3 (Version None)
Quarter: 2009Q4

REPORT INFORMATION
  Report Type: 
  Country: None (occurrence: None)
  Receive Date: 20091001
  Receipt Date: 20090922
  Transmission Date: 20100525
  Serious: Yes (Other)
  Sender: FDA-Public Use
  Company Number: US-SANOFI-SYNTHELABO-A03200904335

PATIENT
  Sex: Female

DRUGS (1)
  1. AMBIEN [Suspect]
     Indication: INSOMNIA
     Route: 048
     Dates: start: 20030101

REACTIONS (5)
  - AMNESIA [None]
  - FALL [None]
  - LOSS OF CONSCIOUSNESS [None]
  - SEXUAL DYSFUNCTION [None]
  - SOMNAMBULISM [None]
